FAERS Safety Report 24361193 (Version 1)
Quarter: 2024Q3

REPORT INFORMATION
  Report Type: Spontaneous
  Country: CN (occurrence: CN)
  Receive Date: 20240925
  Receipt Date: 20240925
  Transmission Date: 20241017
  Serious: Yes (Other)
  Sender: SANDOZ
  Company Number: CN-002147023-NVSC2024CN188033

PATIENT
  Age: 76 Year
  Sex: Female
  Weight: 50.3 kg

DRUGS (1)
  1. DEXAMETHASONE\TOBRAMYCIN [Suspect]
     Active Substance: DEXAMETHASONE\TOBRAMYCIN
     Indication: Keratitis
     Dosage: 1 DOSAGE FORM, TID (INJECTION)
     Route: 047
     Dates: start: 20240802, end: 20240906

REACTIONS (2)
  - Xerophthalmia [Unknown]
  - Keratitis [Recovered/Resolved]

NARRATIVE: CASE EVENT DATE: 20240830
